FAERS Safety Report 15898933 (Version 3)
Quarter: 2019Q2

REPORT INFORMATION
  Report Type: Report from Study
  Country: US (occurrence: US)
  Receive Date: 20190201
  Receipt Date: 20190510
  Transmission Date: 20190711
  Serious: Yes (Death, Other)
  Sender: FDA-Public Use
  Company Number: US-REGENERON PHARMACEUTICALS, INC.-2019-13547

PATIENT

DRUGS (1)
  1. EYLEA [Suspect]
     Active Substance: AFLIBERCEPT
     Indication: MACULAR DEGENERATION
     Dosage: 2 MG, UNK
     Route: 031
     Dates: start: 20161026, end: 20161026

REACTIONS (2)
  - Death [Fatal]
  - Product dose omission [Unknown]

NARRATIVE: CASE EVENT DATE: 20190109
